FAERS Safety Report 18311786 (Version 1)
Quarter: 2020Q3

REPORT INFORMATION
  Report Type: Spontaneous
  Country: US (occurrence: US)
  Receive Date: 20200924
  Receipt Date: 20200924
  Transmission Date: 20201103
  Serious: No
  Sender: FDA-Public Use
  Company Number: None

PATIENT
  Age: 79 Year
  Sex: Female

DRUGS (1)
  1. CAPECITABINE TAB 150MG [Suspect]
     Active Substance: CAPECITABINE
     Dosage: OTHER
     Route: 048

REACTIONS (2)
  - Palmar-plantar erythrodysaesthesia syndrome [None]
  - Therapy change [None]

NARRATIVE: CASE EVENT DATE: 20200923
